FAERS Safety Report 4805907-9 (Version None)
Quarter: 2005Q4

REPORT INFORMATION
  Report Type: 
  Country: None (occurrence: None)
  Receive Date: 20051018
  Receipt Date: 20051006
  Transmission Date: 20060501
  Serious: Yes (Hospitalization)
  Sender: FDA-Public Use
  Company Number: 2005PV002858

PATIENT
  Age: 46 Year
  Sex: Female

DRUGS (11)
  1. BYETTA [Suspect]
     Indication: DIABETES MELLITUS NON-INSULIN-DEPENDENT
     Dosage: 5 MCG; SC
     Route: 058
     Dates: start: 20050101
  2. COGENTIN [Concomitant]
  3. NEXIUM [Concomitant]
  4. RISPERDAL [Concomitant]
  5. PRINIVIL [Concomitant]
  6. EFFEXOR [Concomitant]
  7. PROLIXIN [Concomitant]
  8. ALLEGRA [Concomitant]
  9. LORAZEPAM [Concomitant]
  10. VYTORIN [Concomitant]
  11. METFORMIN HCL [Concomitant]

REACTIONS (4)
  - AGITATION [None]
  - ANXIETY [None]
  - CONDITION AGGRAVATED [None]
  - SCHIZOPHRENIA [None]
